FAERS Safety Report 8078744-2 (Version None)
Quarter: 2012Q1

REPORT INFORMATION
  Report Type: 
  Country: None (occurrence: None)
  Receive Date: 20120125
  Receipt Date: 20120117
  Transmission Date: 20120608
  Serious: Yes (Other)
  Sender: FDA-Public Use
  Company Number: 2011SP054526

PATIENT
  Age: 40 Year
  Sex: Female
  Weight: 90.2658 kg

DRUGS (12)
  1. LAMOTRIGINE [Concomitant]
  2. NEXIUM [Concomitant]
  3. VICTRELIS [Suspect]
     Indication: PRODUCT USED FOR UNKNOWN INDICATION
     Dosage: 800 MG;Q8H;PO
     Route: 048
     Dates: start: 20111025
  4. PEGASYS [Suspect]
     Indication: PRODUCT USED FOR UNKNOWN INDICATION
     Dates: start: 20111025
  5. ONDANSETRON HCL [Concomitant]
  6. HYDROCODONE BITARTRATE AND ACETAMINOPHEN [Concomitant]
  7. FISH OIL [Concomitant]
  8. CLONAZEPAM [Concomitant]
  9. FOLIC ACID [Concomitant]
  10. MULTI-VITAMIN [Concomitant]
  11. RIBAVIRIN [Suspect]
     Indication: PRODUCT USED FOR UNKNOWN INDICATION
     Dosage: 200 MG
     Dates: start: 20111025
  12. MELATONIN [Concomitant]

REACTIONS (10)
  - BRONCHITIS [None]
  - NAUSEA [None]
  - DYSGEUSIA [None]
  - WEIGHT INCREASED [None]
  - VOMITING [None]
  - WHITE BLOOD CELL COUNT DECREASED [None]
  - DYSPHONIA [None]
  - RASH [None]
  - SKIN LESION [None]
  - BLISTER [None]
